FAERS Safety Report 24325862 (Version 1)
Quarter: 2024Q3

REPORT INFORMATION
  Report Type: Spontaneous
  Country: PT (occurrence: PT)
  Receive Date: 20240917
  Receipt Date: 20240917
  Transmission Date: 20241017
  Serious: Yes (Hospitalization, Other)
  Sender: NOVITIUM PHARMA
  Company Number: PT-NOVITIUMPHARMA-2024PTNVP01703

PATIENT
  Sex: Male

DRUGS (4)
  1. RISPERIDONE [Suspect]
     Active Substance: RISPERIDONE
     Indication: Substance-induced psychotic disorder
     Dosage: TITRATED TO 4 MG/DAY
  2. DEXAMETHASONE [Suspect]
     Active Substance: DEXAMETHASONE
     Indication: Diffuse large B-cell lymphoma
     Route: 042
  3. DEXAMETHASONE [Suspect]
     Active Substance: DEXAMETHASONE
     Dosage: DOSE REDUCED
  4. LORAZEPAM [Concomitant]
     Active Substance: LORAZEPAM
     Indication: Substance-induced psychotic disorder

REACTIONS (3)
  - Toxic skin eruption [Recovered/Resolved]
  - Substance-induced psychotic disorder [Recovered/Resolved]
  - Rebound effect [Unknown]
